FAERS Safety Report 9049934 (Version 3)
Quarter: 2013Q2

REPORT INFORMATION
  Report Type: Spontaneous
  Country: US (occurrence: US)
  Receive Date: 20130205
  Receipt Date: 20130417
  Transmission Date: 20140414
  Serious: No
  Sender: FDA-Public Use
  Company Number: US-PFIZER INC-2013047149

PATIENT
  Age: 73 Year
  Sex: Female
  Weight: 52.6 kg

DRUGS (2)
  1. LYRICA [Suspect]
     Indication: NEURALGIA
     Dosage: 100 MG, 2X/DAY
     Dates: start: 20130120
  2. HYDROCODONE [Suspect]
     Indication: NEURALGIA
     Dosage: UNK

REACTIONS (4)
  - Drug ineffective [Recovering/Resolving]
  - Neuralgia [Recovering/Resolving]
  - Muscle spasms [Unknown]
  - Back pain [Unknown]
